FAERS Safety Report 8887705 (Version 1)
Quarter: 2012Q4

REPORT INFORMATION
  Report Type: 
  Country: US (occurrence: US)
  Receive Date: 20121106
  Receipt Date: 20121106
  Transmission Date: 20130627
  Serious: Yes (Other)
  Sender: FDA-Public Use
  Company Number: US-AMGEN-USASP2012063784

PATIENT
  Age: 54 Year
  Sex: Female
  Weight: 88.44 kg

DRUGS (5)
  1. ENBREL [Suspect]
     Indication: RHEUMATOID ARTHRITIS
     Dosage: 50 mg, qwk
     Dates: start: 20120301, end: 20120319
  2. METHOTREXATE [Concomitant]
     Indication: RHEUMATOID ARTHRITIS
     Dosage: 10 mg, qwk
     Route: 048
  3. METFORMIN [Concomitant]
     Indication: DIABETES MELLITUS
     Dosage: 500 mg, tid
     Route: 048
  4. VICTOZA [Concomitant]
     Indication: DIABETES MELLITUS
     Dosage: UNK UNK, qd
     Route: 058
  5. GLYBURIDE [Concomitant]
     Indication: DIABETES MELLITUS
     Dosage: 5 UNK, bid
     Route: 048

REACTIONS (5)
  - Ocular vascular disorder [Recovered/Resolved]
  - Cataract [Not Recovered/Not Resolved]
  - Pain [Not Recovered/Not Resolved]
  - Rheumatoid arthritis [Not Recovered/Not Resolved]
  - Herpes zoster [Recovered/Resolved]
